FAERS Safety Report 8005098-X (Version None)
Quarter: 2011Q4

REPORT INFORMATION
  Report Type: 
  Country: None (occurrence: None)
  Receive Date: 20111223
  Receipt Date: 20111212
  Transmission Date: 20120403
  Serious: Yes (Other)
  Sender: FDA-Public Use
  Company Number: PHEH2011US08260

PATIENT
  Sex: Female

DRUGS (7)
  1. DIOVAN [Concomitant]
  2. CRESTOR [Concomitant]
  3. EXELON [Suspect]
     Dosage: 4.6 MG\24HRS
     Route: 062
  4. EXELON [Suspect]
     Dosage: 9.5 MG\24 HRS
     Route: 062
  5. APRESIAN [Concomitant]
  6. METOPROLOL SUCCINATE [Concomitant]
  7. EXELON [Suspect]
     Dosage: 4.6 MG\24HRS
     Route: 062

REACTIONS (7)
  - MEMORY IMPAIRMENT [None]
  - PAIN [None]
  - MALAISE [None]
  - LOSS OF CONSCIOUSNESS [None]
  - LOOSE ASSOCIATIONS [None]
  - DRUG INTOLERANCE [None]
  - DRUG HYPERSENSITIVITY [None]
